FAERS Safety Report 4531878-9 (Version None)
Quarter: 2004Q4

REPORT INFORMATION
  Report Type: 
  Country: None (occurrence: None)
  Receive Date: 20041216
  Receipt Date: 20041124
  Transmission Date: 20050328
  Serious: Yes (Death, Hospitalization, Other)
  Sender: FDA-Public Use
  Company Number: USA040978448

PATIENT
  Age: 45 Year
  Sex: Male
  Weight: 86 kg

DRUGS (21)
  1. GEMZAR [Suspect]
     Indication: PANCREATIC CARCINOMA METASTATIC
     Dosage: 1500 MG OTHER
     Route: 050
     Dates: start: 20040325, end: 20040816
  2. DOXIL [Concomitant]
  3. TAXOTERE (DOXCETAXEL) [Concomitant]
  4. XELODA [Concomitant]
  5. LOVENOX [Concomitant]
  6. K-DUR 10 [Concomitant]
  7. PLETAL (CICLOSTAZOL) [Concomitant]
  8. EFFEXOR XR [Concomitant]
  9. SYNTHROID [Concomitant]
  10. DURICEF [Concomitant]
  11. MUMEX (BUMETANIDE0 [Concomitant]
  12. DIFLUCAN [Concomitant]
  13. PERCOCET [Concomitant]
  14. PANCREASE MT [Concomitant]
  15. ANZEMET (DOLASETRON MESILATE) [Concomitant]
  16. COMPAZINE [Concomitant]
  17. OXYCONTIN [Concomitant]
  18. ZOFRAN [Concomitant]
  19. MEGACE (MEGESTROL ACETATE0 [Concomitant]
  20. BEXTRA [Concomitant]
  21. COUMADIN [Concomitant]

REACTIONS (6)
  - ASCITES [None]
  - COAGULOPATHY [None]
  - DRUG INTERACTION [None]
  - HAEMOLYTIC URAEMIC SYNDROME [None]
  - OEDEMA PERIPHERAL [None]
  - THROMBOCYTOPENIA [None]
